FAERS Safety Report 6167822-0 (Version None)
Quarter: 2009Q2

REPORT INFORMATION
  Report Type: 
  Country: None (occurrence: None)
  Receive Date: 20090427
  Receipt Date: 20090330
  Transmission Date: 20091009
  Serious: Yes (Other)
  Sender: FDA-Public Use
  Company Number: US-JNJFOC-20090400034

PATIENT
  Sex: Female

DRUGS (11)
  1. TOPAMAX [Suspect]
     Indication: MIGRAINE PROPHYLAXIS
     Route: 048
  2. UNSPECIFIED MEDICATION [Concomitant]
     Indication: MIGRAINE
     Route: 065
  3. PREMARIN [Concomitant]
     Indication: MENOPAUSE
     Route: 065
  4. ASACOL [Concomitant]
     Indication: COLITIS
     Route: 048
  5. NORTRIPTYLINE HCL [Concomitant]
     Indication: MIGRAINE
     Route: 065
  6. CYPROHEPTADINE HCL [Concomitant]
     Indication: MIGRAINE
     Route: 065
  7. ACETAZOLAMIDE [Concomitant]
     Indication: MOUNTAIN SICKNESS ACUTE
     Route: 065
  8. ZYPREXA [Concomitant]
     Indication: MIGRAINE
     Route: 065
  9. HYDROXYZINE [Concomitant]
     Indication: MIGRAINE
     Route: 065
  10. BACLOFEN [Concomitant]
     Indication: MIGRAINE
     Dosage: AS NEEDED
     Route: 065
  11. DEXAMETHAZINE [Concomitant]
     Indication: MIGRAINE
     Dosage: AS NEEDED
     Route: 065

REACTIONS (3)
  - FEELING HOT [None]
  - MIGRAINE [None]
  - PRODUCT COUNTERFEIT [None]
